FAERS Safety Report 7262095-X (Version None)
Quarter: 2011Q1

REPORT INFORMATION
  Report Type: 
  Country: None (occurrence: None)
  Receive Date: 20110130
  Receipt Date: 20101230
  Transmission Date: 20110831
  Serious: No
  Sender: FDA-Public Use
  Company Number: US-ABBOTT-10P-163-0689091-00

PATIENT
  Sex: Female
  Weight: 90.8 kg

DRUGS (6)
  1. METHOTREXATE [Suspect]
     Indication: RHEUMATOID ARTHRITIS
     Dosage: MULTI-DOSE VIAL W/PRESERVATIVE
     Route: 058
     Dates: start: 20101001, end: 20101001
  2. HUMIRA [Suspect]
     Route: 058
     Dates: end: 20101001
  3. HUMIRA [Suspect]
     Dates: start: 20101001, end: 20101202
  4. UNKNOWN ANTIBIOTIC [Suspect]
     Indication: FURUNCLE
     Route: 048
     Dates: start: 20101101, end: 20101101
  5. HUMIRA [Suspect]
     Indication: RHEUMATOID ARTHRITIS
     Route: 058
     Dates: start: 20080101, end: 20100801
  6. PREDNISONE [Concomitant]
     Indication: RHEUMATOID ARTHRITIS
     Dosage: TAPER
     Route: 048
     Dates: start: 20080101

REACTIONS (9)
  - MUSCULOSKELETAL CHEST PAIN [None]
  - FURUNCLE [None]
  - SOFT TISSUE INFLAMMATION [None]
  - INFLAMMATION [None]
  - GASTROINTESTINAL DISORDER [None]
  - VOMITING [None]
  - RHEUMATOID ARTHRITIS [None]
  - DISBACTERIOSIS [None]
  - SKIN DISORDER [None]
